FAERS Safety Report 8845171 (Version 3)
Quarter: 2013Q2

REPORT INFORMATION
  Report Type: Spontaneous
  Country: US (occurrence: None)
  Receive Date: 20121015
  Receipt Date: 20130430
  Transmission Date: 20140414
  Serious: Yes (Death, Congenital Anomaly, Other)
  Sender: FDA-Public Use
  Company Number: AUR-APL-2012-04310

PATIENT
  Sex: 0

DRUGS (4)
  1. TOPIRAMATE [Suspect]
     Indication: EPILEPSY
     Route: 064
  2. ACETAZOLAMIDE [Suspect]
     Indication: EPILEPSY
     Route: 064
  3. TEGRETOL [Suspect]
     Indication: EPILEPSY
     Dosage: 800 MG, 1 D, TRANSPLACENTAL
     Route: 064
  4. ZONISAMIDE [Suspect]
     Indication: EPILEPSY
     Route: 064

REACTIONS (3)
  - Foetal exposure during pregnancy [None]
  - Congenital intestinal malformation [None]
  - Death neonatal [None]
